FAERS Safety Report 14355886 (Version 1)
Quarter: 2018Q1

REPORT INFORMATION
  Report Type: Spontaneous
  Country: US (occurrence: US)
  Receive Date: 20180104
  Receipt Date: 20180104
  Transmission Date: 20180509
  Serious: No
  Sender: FDA-Public Use
  Company Number: None

PATIENT
  Age: 38 Year
  Sex: Male

DRUGS (1)
  1. HARVONI [Suspect]
     Active Substance: LEDIPASVIR\SOFOSBUVIR

REACTIONS (6)
  - Hypertension [None]
  - Pyrexia [None]
  - Oropharyngeal pain [None]
  - Dizziness [None]
  - Pulmonary congestion [None]
  - Respiratory symptom [None]

NARRATIVE: CASE EVENT DATE: 20180104
